FAERS Safety Report 8791804 (Version 6)
Quarter: 2013Q2

REPORT INFORMATION
  Report Type: Spontaneous
  Country: US (occurrence: US)
  Receive Date: 20120918
  Receipt Date: 20130429
  Transmission Date: 20140414
  Serious: Yes (Hospitalization, Other)
  Sender: FDA-Public Use
  Company Number: US-009507513-1203USA01174

PATIENT
  Sex: Female
  Weight: 64.85 kg

DRUGS (4)
  1. FOSAMAX [Suspect]
     Indication: OSTEOPOROSIS
     Dosage: 70 MG, QW
     Route: 048
     Dates: start: 20020509, end: 200606
  2. BONIVA [Suspect]
     Indication: OSTEOPOROSIS
     Dosage: 150 MG, QM
     Route: 048
     Dates: start: 200610, end: 200805
  3. FOSAMAX [Suspect]
     Indication: OSTEOPOROSIS
     Dosage: 70 MG, QW
     Route: 048
     Dates: start: 2008, end: 2009
  4. ALENDRONATE SODIUM [Suspect]
     Indication: OSTEOPOROSIS
     Dosage: 70 MG, QW
     Route: 048
     Dates: start: 200806, end: 201002

REACTIONS (15)
  - Femur fracture [Unknown]
  - Hip fracture [Unknown]
  - Internal fixation of fracture [Unknown]
  - Anaemia postoperative [Recovered/Resolved]
  - Fall [Unknown]
  - Low turnover osteopathy [Unknown]
  - Inappropriate schedule of drug administration [Unknown]
  - Avulsion fracture [Unknown]
  - Lipids increased [Unknown]
  - Emphysema [Unknown]
  - Adrenal adenoma [Unknown]
  - Arteriosclerosis coronary artery [Unknown]
  - Adverse event [Unknown]
  - Spinal osteoarthritis [Unknown]
  - Scoliosis [Unknown]
